FAERS Safety Report 15704248 (Version 1)
Quarter: 2018Q4

REPORT INFORMATION
  Report Type: Spontaneous
  Country: ES (occurrence: ES)
  Receive Date: 20181210
  Receipt Date: 20181210
  Transmission Date: 20190205
  Serious: Yes (Hospitalization)
  Sender: FDA-Public Use
  Company Number: ES-ELI_LILLY_AND_COMPANY-ES201812002478

PATIENT
  Age: 68 Year
  Sex: Male
  Weight: 66 kg

DRUGS (3)
  1. ERBITUX [Suspect]
     Active Substance: CETUXIMAB
     Indication: ADENOCARCINOMA
     Dosage: 640 MG, UNKNOWN
     Route: 042
     Dates: start: 20180716
  2. FLUOROURACILO ACCORD [Suspect]
     Active Substance: FLUOROURACIL
     Indication: ADENOCARCINOMA
     Dosage: 640 MG, UNKNOWN
     Route: 042
     Dates: start: 20180716
  3. OXALIPLATINO TEVA [Suspect]
     Active Substance: OXALIPLATIN
     Indication: ADENOCARCINOMA
     Dosage: 140 MG, UNKNOWN
     Route: 042
     Dates: start: 20180716

REACTIONS (4)
  - Mucosal inflammation [Recovering/Resolving]
  - Pancytopenia [Recovering/Resolving]
  - Enteritis [Recovering/Resolving]
  - Necrotising oesophagitis [Recovering/Resolving]

NARRATIVE: CASE EVENT DATE: 20180816
